FAERS Safety Report 9922339 (Version 2)
Quarter: 2014Q1

REPORT INFORMATION
  Report Type: Spontaneous
  Country: IT (occurrence: IT)
  Receive Date: 20140225
  Receipt Date: 20140305
  Transmission Date: 20141002
  Serious: Yes (Hospitalization)
  Sender: FDA-Public Use
  Company Number: IT-ASTRAZENECA-2014SE11405

PATIENT
  Age: 30227 Day
  Sex: Female

DRUGS (13)
  1. NEXIUM [Suspect]
     Route: 048
     Dates: start: 20131127, end: 20131222
  2. LANOXIN [Interacting]
     Route: 048
     Dates: start: 20131201, end: 20131219
  3. LANOXIN [Interacting]
     Route: 048
     Dates: start: 20131220, end: 20131222
  4. LORAZEPAM [Concomitant]
     Route: 048
  5. LYRICA [Concomitant]
     Indication: TRIGEMINAL NEURALGIA
     Route: 048
     Dates: start: 20131026, end: 20131222
  6. RESPICUR [Concomitant]
     Indication: CHRONIC OBSTRUCTIVE PULMONARY DISEASE
     Route: 048
     Dates: start: 20131026, end: 20131222
  7. KEPPRA [Concomitant]
     Route: 048
     Dates: start: 20131026, end: 20131222
  8. LASIX [Concomitant]
     Indication: MYOCARDIAL ISCHAEMIA
     Route: 048
     Dates: start: 20131026, end: 20131222
  9. SANDOMIGRAN [Concomitant]
     Route: 048
     Dates: start: 20131026, end: 20131222
  10. DELTACORTENE [Concomitant]
     Route: 048
     Dates: start: 20131026, end: 20131222
  11. CLEXANE [Concomitant]
     Dosage: 4000UI SOLUTION FOR INJECTION, 1DF
     Route: 058
     Dates: start: 20131127, end: 20131222
  12. INSULIN THERAPY NOS [Concomitant]
     Indication: DIABETES MELLITUS
  13. OXYGEN [Concomitant]
     Dosage: ALL DAY

REACTIONS (5)
  - Drug interaction [Recovered/Resolved]
  - Electrolyte imbalance [Recovered/Resolved]
  - Sopor [Recovered/Resolved]
  - Nausea [Recovered/Resolved]
  - Drug prescribing error [Recovered/Resolved]
